FAERS Safety Report 6284280-6 (Version None)
Quarter: 2009Q3

REPORT INFORMATION
  Report Type: 
  Country: None (occurrence: None)
  Receive Date: 20090727
  Receipt Date: 20090717
  Transmission Date: 20100115
  Serious: Yes (Other)
  Sender: FDA-Public Use
  Company Number: PHHY2009BR13600

PATIENT
  Sex: Female

DRUGS (3)
  1. ESTRADERM [Suspect]
     Dosage: 25 UG, UNK
     Route: 062
  2. LEXOTAN [Concomitant]
     Dosage: 3 MG, 1 TABLET AT NIGHT
  3. SYNTHROID [Concomitant]
     Dosage: 1 TABLET DAILY
     Route: 048

REACTIONS (10)
  - APPLICATION SITE ERYTHEMA [None]
  - DEVICE LEAKAGE [None]
  - DRUG DOSE OMISSION [None]
  - HEAD DISCOMFORT [None]
  - HEADACHE [None]
  - HOT FLUSH [None]
  - HYPOTHYROIDISM [None]
  - MENOPAUSAL SYMPTOMS [None]
  - VERTIGO [None]
  - WRONG TECHNIQUE IN DRUG USAGE PROCESS [None]
